FAERS Safety Report 12064614 (Version 1)
Quarter: 2016Q1

REPORT INFORMATION
  Report Type: Spontaneous
  Country: FR (occurrence: FR)
  Receive Date: 20160210
  Receipt Date: 20160210
  Transmission Date: 20160526
  Serious: Yes (Hospitalization, Other)
  Sender: FDA-Public Use
  Company Number: FR-GILEAD-2016-0196488

PATIENT
  Age: 36 Year
  Sex: Female

DRUGS (1)
  1. VIREAD [Suspect]
     Active Substance: TENOFOVIR DISOPROXIL FUMARATE
     Indication: HEPATITIS B
     Dosage: 245 MG, UNK
     Route: 048
     Dates: start: 20151103

REACTIONS (3)
  - Condition aggravated [Not Recovered/Not Resolved]
  - Neuralgia [Not Recovered/Not Resolved]
  - Polyneuropathy [Not Recovered/Not Resolved]
